FAERS Safety Report 8234995-5 (Version None)
Quarter: 2012Q1

REPORT INFORMATION
  Report Type: 
  Country: None (occurrence: None)
  Receive Date: 20120322
  Receipt Date: 20120319
  Transmission Date: 20120608
  Serious: Yes (Hospitalization)
  Sender: FDA-Public Use
  Company Number: 2011SP049920

PATIENT
  Age: 25 Year
  Sex: Female
  Weight: 77.1115 kg

DRUGS (5)
  1. NUVARING [Suspect]
     Indication: MIGRAINE
     Dosage: ;VAG
     Route: 067
     Dates: start: 20070401, end: 20070918
  2. NUVARING [Suspect]
     Indication: CONTRACEPTION
     Dosage: ;VAG
     Route: 067
     Dates: start: 20070401, end: 20070918
  3. NUVARING [Suspect]
     Indication: MENSTRUAL CYCLE MANAGEMENT
     Dosage: ;VAG
     Route: 067
     Dates: start: 20070401, end: 20070918
  4. MULTI-VITAMIN [Concomitant]
  5. CALCIUM AND VITAMIN D [Concomitant]

REACTIONS (9)
  - MATERNAL EXPOSURE BEFORE PREGNANCY [None]
  - PLEURAL EFFUSION [None]
  - ATELECTASIS [None]
  - LUNG NEOPLASM [None]
  - BRONCHITIS [None]
  - THROMBOSIS [None]
  - PAIN IN EXTREMITY [None]
  - PREGNANCY [None]
  - PULMONARY EMBOLISM [None]
